FAERS Safety Report 21854174 (Version 1)
Quarter: 2023Q1

REPORT INFORMATION
  Report Type: Spontaneous
  Country: US (occurrence: None)
  Receive Date: 20230111
  Receipt Date: 20230111
  Transmission Date: 20230418
  Serious: Yes (Life-Threatening, Hospitalization)
  Sender: FDA-Public Use
  Company Number: None

PATIENT
  Age: 66 Year
  Sex: Female

DRUGS (2)
  1. AMBRISENTAN [Suspect]
     Active Substance: AMBRISENTAN
     Indication: Pulmonary arterial hypertension
     Dosage: FREQUENCY : DAILY;?
     Route: 048
  2. OFEV [Suspect]
     Active Substance: NINTEDANIB

REACTIONS (4)
  - COVID-19 [None]
  - Thrombosis [None]
  - Therapy interrupted [None]
  - Economic problem [None]

NARRATIVE: CASE EVENT DATE: 20230111
